FAERS Safety Report 7948267-7 (Version None)
Quarter: 2011Q4

REPORT INFORMATION
  Report Type: 
  Country: None (occurrence: None)
  Receive Date: 20111125
  Receipt Date: 20111104
  Transmission Date: 20120403
  Serious: Yes (Other)
  Sender: FDA-Public Use
  Company Number: JPI-P-018097

PATIENT
  Age: 55 Year
  Sex: Male
  Weight: 81.6475 kg

DRUGS (11)
  1. FINASTERIDE [Concomitant]
  2. OXYBUTYNIN [Concomitant]
  3. PREGABALIN [Concomitant]
  4. LAMOTRIGINE [Concomitant]
  5. TERAZOSIN HCL [Concomitant]
  6. DULOXETINE HYDROCHLORIDE [Concomitant]
  7. BUPROPION HCL [Concomitant]
  8. MORPHINE SULFATE [Concomitant]
  9. XYREM [Suspect]
     Indication: PRODUCT USED FOR UNKNOWN INDICATION
     Dosage: 6 GM (3 GM, 2 IN 1 D), ORAL
     Route: 048
     Dates: start: 20040324
  10. BACLOFEN [Concomitant]
  11. OXYCODONE HCL [Concomitant]

REACTIONS (1)
  - LUNG NEOPLASM MALIGNANT [None]
